FAERS Safety Report 23284648 (Version 1)
Quarter: 2023Q4

REPORT INFORMATION
  Report Type: Report from Study
  Country: JP (occurrence: JP)
  Receive Date: 20231211
  Receipt Date: 20231211
  Transmission Date: 20240110
  Serious: Yes (Hospitalization, Other)
  Sender: FDA-Public Use
  Company Number: JP-ABBVIE-4228836

PATIENT
  Age: 64 Year
  Sex: Male

DRUGS (2)
  1. CARBIDOPA\LEVODOPA [Suspect]
     Active Substance: CARBIDOPA\LEVODOPA
     Indication: Parkinson^s disease
     Route: 050
     Dates: start: 20221026
  2. CARBIDOPA\LEVODOPA [Suspect]
     Active Substance: CARBIDOPA\LEVODOPA

REACTIONS (7)
  - Fracture [Unknown]
  - Hyperhidrosis [Unknown]
  - Feeling hot [Unknown]
  - Gait disturbance [Unknown]
  - On and off phenomenon [Unknown]
  - Therapeutic product effect variable [Unknown]
  - Fall [Unknown]

NARRATIVE: CASE EVENT DATE: 20230930
